FAERS Safety Report 20604593 (Version 2)
Quarter: 2022Q1

REPORT INFORMATION
  Report Type: Spontaneous
  Country: CN (occurrence: None)
  Receive Date: 20220316
  Receipt Date: 20220328
  Transmission Date: 20220423
  Serious: Yes (Hospitalization)
  Sender: FDA-Public Use
  Company Number: 2022A102635

PATIENT
  Age: 66 Year
  Sex: Male
  Weight: 69 kg

DRUGS (1)
  1. IMFINZI [Suspect]
     Active Substance: DURVALUMAB
     Indication: Non-small cell lung cancer stage III
     Dosage: 740 MG/CYCLE740.0MG EVERY CYCLE
     Route: 042
     Dates: start: 20211027, end: 20220106

REACTIONS (12)
  - Blood creatine phosphokinase increased [Not Recovered/Not Resolved]
  - Skin ulcer [Recovering/Resolving]
  - Hyperthyroidism [Not Recovered/Not Resolved]
  - Rash [Recovering/Resolving]
  - Arteriosclerosis coronary artery [Not Recovered/Not Resolved]
  - Aortic arteriosclerosis [Not Recovered/Not Resolved]
  - Gait inability [Not Recovered/Not Resolved]
  - Thermal burn [Recovering/Resolving]
  - Pain of skin [Recovering/Resolving]
  - Scar [Recovering/Resolving]
  - Speech disorder [Not Recovered/Not Resolved]
  - Pneumonia [Recovering/Resolving]

NARRATIVE: CASE EVENT DATE: 20220111
